FAERS Safety Report 12485575 (Version 2)
Quarter: 2019Q1

REPORT INFORMATION
  Report Type: Spontaneous
  Country: HU (occurrence: HU)
  Receive Date: 20160621
  Receipt Date: 20190122
  Transmission Date: 20190417
  Serious: Yes (Hospitalization, Other)
  Sender: FDA-Public Use
  Company Number: HU-BAYER-2016-114982

PATIENT
  Age: 83 Year
  Sex: Male

DRUGS (1)
  1. CIPROFLOXACIN. [Suspect]
     Active Substance: CIPROFLOXACIN
     Indication: PROPHYLAXIS
     Route: 048

REACTIONS (3)
  - Meningitis [Recovering/Resolving]
  - Pathogen resistance [Recovered/Resolved]
  - Off label use [Unknown]
